FAERS Safety Report 4486946-7 (Version None)
Quarter: 2004Q4

REPORT INFORMATION
  Report Type: 
  Country: None (occurrence: None)
  Receive Date: 20041022
  Receipt Date: 20041008
  Transmission Date: 20050328
  Serious: Yes (Hospitalization)
  Sender: FDA-Public Use
  Company Number: 2004235147BE

PATIENT
  Age: 57 Year
  Sex: Male

DRUGS (6)
  1. MEDROL [Suspect]
     Dates: start: 20021010
  2. BMS224819 (INVESTIGATIONAL) [Suspect]
     Indication: RENAL TRANSPLANT
     Dosage: 5MG/KG, IV
     Route: 042
     Dates: start: 20021008
  3. CELLCEPT [Suspect]
     Dates: start: 20021008
  4. CITALOPRAM [Concomitant]
  5. CLARITIN [Concomitant]
  6. POLARAMINE [Concomitant]

REACTIONS (1)
  - KIDNEY TRANSPLANT REJECTION [None]
